FAERS Safety Report 18843771 (Version 1)
Quarter: 2021Q1

REPORT INFORMATION
  Report Type: Report from Study
  Country: US (occurrence: US)
  Receive Date: 20210203
  Receipt Date: 20210203
  Transmission Date: 20210419
  Serious: No
  Sender: FDA-Public Use
  Company Number: US-EXELIXIS-CABO-20027957

PATIENT
  Sex: Male

DRUGS (6)
  1. CABOMETYX [Suspect]
     Active Substance: CABOZANTINIB S-MALATE
     Indication: RENAL CELL CARCINOMA
     Dosage: 40 MG (M?F, OFF S/S )
     Route: 048
  2. OPDIVO [Concomitant]
     Active Substance: NIVOLUMAB
  3. ZOMETA [Concomitant]
     Active Substance: ZOLEDRONIC ACID
  4. OXYCODONE [Concomitant]
     Active Substance: OXYCODONE
  5. CABOMETYX [Suspect]
     Active Substance: CABOZANTINIB S-MALATE
     Dosage: 20 MG (M?F, OFF S/S )
     Route: 048
     Dates: start: 20200406
  6. CABOMETYX [Suspect]
     Active Substance: CABOZANTINIB S-MALATE
     Dosage: 40 MG
     Route: 048
     Dates: start: 202005

REACTIONS (14)
  - Dry skin [Recovering/Resolving]
  - Decreased appetite [Recovered/Resolved]
  - Blood pressure increased [Recovered/Resolved]
  - Seasonal allergy [Unknown]
  - Joint stiffness [Not Recovered/Not Resolved]
  - Sinusitis [Recovered/Resolved]
  - Hypothyroidism [Not Recovered/Not Resolved]
  - Pain in extremity [Recovering/Resolving]
  - Fatigue [Not Recovered/Not Resolved]
  - Skin ulcer [Recovering/Resolving]
  - Diarrhoea [Not Recovered/Not Resolved]
  - Stomatitis [Recovered/Resolved]
  - Taste disorder [Not Recovered/Not Resolved]
  - Inappropriate schedule of product administration [Unknown]
